FAERS Safety Report 16204181 (Version 4)
Quarter: 2019Q3

REPORT INFORMATION
  Report Type: Spontaneous
  Country: FR (occurrence: FR)
  Receive Date: 20190416
  Receipt Date: 20190816
  Transmission Date: 20191004
  Serious: Yes (Life-Threatening, Hospitalization, Other)
  Sender: FDA-Public Use
  Company Number: FR-ASTRAZENECA-2019SE57552

PATIENT
  Age: 658 Month
  Sex: Female
  Weight: 75 kg

DRUGS (2)
  1. LYNPARZA [Suspect]
     Active Substance: OLAPARIB
     Dosage: 8 CAPSULES IN THE MORNING AND 8 CAPSULES IN THE EVENING
     Route: 048
     Dates: start: 201804
  2. LYNPARZA [Suspect]
     Active Substance: OLAPARIB
     Route: 048
     Dates: start: 201705

REACTIONS (7)
  - Lung infection [Recovered/Resolved]
  - Swelling [Unknown]
  - Intracranial aneurysm [Unknown]
  - Malaise [Unknown]
  - Neck pain [Recovered/Resolved]
  - Pulmonary mass [Unknown]
  - Dyspnoea [Unknown]

NARRATIVE: CASE EVENT DATE: 201806
